FAERS Safety Report 4719068-8 (Version None)
Quarter: 2005Q3

REPORT INFORMATION
  Report Type: 
  Country: None (occurrence: None)
  Receive Date: 20050719
  Receipt Date: 20050704
  Transmission Date: 20060218
  Serious: Yes (Hospitalization)
  Sender: FDA-Public Use
  Company Number: GBS050717792

PATIENT
  Age: 80 Year

DRUGS (8)
  1. OLANZAPINE [Suspect]
     Indication: HALLUCINATION, AUDITORY
     Dosage: 10 MG
     Dates: start: 20050421, end: 20050517
  2. ASPIRIN [Concomitant]
  3. FUROSEMIDE (FUROSEMIDE   /00032601/) [Concomitant]
  4. SPIRONOLACTONE [Concomitant]
  5. LANSOPRZOLE [Concomitant]
  6. ATORVASTATIN CALCIUM [Concomitant]
  7. RAMIPRIL [Concomitant]
  8. LORAZEPAM [Concomitant]

REACTIONS (2)
  - AGGRESSION [None]
  - BLOOD ALKALINE PHOSPHATASE INCREASED [None]
